FAERS Safety Report 5000627-2 (Version None)
Quarter: 2006Q2

REPORT INFORMATION
  Report Type: 
  Country: None (occurrence: None)
  Receive Date: 20060512
  Receipt Date: 20060502
  Transmission Date: 20061013
  Serious: Yes (Other)
  Sender: FDA-Public Use
  Company Number: NL-BRISTOL-MYERS SQUIBB COMPANY-13364286

PATIENT
  Age: 73 Year
  Sex: Female
  Weight: 80 kg

DRUGS (4)
  1. APROVEL FILM-COATED TABS 150 MG [Suspect]
     Indication: HYPERTENSION
     Route: 048
     Dates: start: 20060111, end: 20060420
  2. CRESTOR [Concomitant]
     Indication: HYPERTENSION
     Dosage: DURATION: } 1 YEAR
     Route: 048
  3. SELOKEEN [Concomitant]
     Indication: HYPERTENSION
     Dosage: DOSE WAS INCREASED ON 11-JAN-2006
     Route: 048
  4. ZESTORETIC [Concomitant]
     Indication: HYPERTENSION
     Dosage: DOSAGE: 20 / 12.5 MG DAILY, CHRONIC USE
     Route: 048
     Dates: start: 20050808

REACTIONS (2)
  - MUSCLE RIGIDITY [None]
  - VISUAL ACUITY REDUCED [None]
